FAERS Safety Report 16166434 (Version 3)
Quarter: 2019Q3

REPORT INFORMATION
  Report Type: Spontaneous
  Country: US (occurrence: US)
  Receive Date: 20190407
  Receipt Date: 20190906
  Transmission Date: 20191004
  Serious: Yes (Other)
  Sender: FDA-Public Use
  Company Number: US-JNJFOC-20100703815

PATIENT
  Sex: Female
  Weight: 86.26 kg

DRUGS (4)
  1. FENTANYL. [Suspect]
     Active Substance: FENTANYL
     Route: 062
     Dates: start: 2008
  2. FENTANYL. [Suspect]
     Active Substance: FENTANYL
     Indication: BACK PAIN
     Route: 062
     Dates: start: 2005, end: 2008
  3. DURAGESIC [Suspect]
     Active Substance: FENTANYL
     Indication: BACK PAIN
     Route: 062
     Dates: start: 1997, end: 2005
  4. FENTANYL. [Suspect]
     Active Substance: FENTANYL
     Indication: PAIN
     Route: 062

REACTIONS (4)
  - Product complaint [Recovered/Resolved]
  - Malaise [Recovered/Resolved]
  - Dependence [Unknown]
  - Product dose omission [Unknown]

NARRATIVE: CASE EVENT DATE: 2001
